FAERS Safety Report 21157665 (Version 1)
Quarter: 2022Q3

REPORT INFORMATION
  Report Type: Spontaneous
  Country: US (occurrence: None)
  Receive Date: 20220731
  Receipt Date: 20220731
  Transmission Date: 20221026
  Serious: Yes (Hospitalization)
  Sender: FDA-Public Use
  Company Number: None

PATIENT
  Age: 68 Year
  Sex: Female
  Weight: 76.5 kg

DRUGS (6)
  1. RYBELSUS [Suspect]
     Active Substance: SEMAGLUTIDE
     Indication: Type 2 diabetes mellitus
     Dosage: OTHER QUANTITY : 1 TABLET(S);?
     Route: 048
     Dates: start: 20220415, end: 20220721
  2. METOPROLOL [Concomitant]
     Active Substance: METOPROLOL
  3. PROZAC [Concomitant]
     Active Substance: FLUOXETINE HYDROCHLORIDE
  4. CYMBALTA [Concomitant]
     Active Substance: DULOXETINE HYDROCHLORIDE
  5. benicar trazadone [Concomitant]
  6. OTC multivitamin [Concomitant]

REACTIONS (4)
  - Bile duct stone [None]
  - Gastritis [None]
  - Oesophagitis [None]
  - Pancreatitis acute [None]

NARRATIVE: CASE EVENT DATE: 20220721
